FAERS Safety Report 7756918-5 (Version None)
Quarter: 2011Q3

REPORT INFORMATION
  Report Type: 
  Country: None (occurrence: None)
  Receive Date: 20110916
  Receipt Date: 20110908
  Transmission Date: 20111222
  Serious: Yes (Other)
  Sender: FDA-Public Use
  Company Number: BR-GLAXOSMITHKLINE-A0944699A

PATIENT

DRUGS (1)
  1. ALKERAN [Suspect]
     Route: 065

REACTIONS (2)
  - ASTHMA [None]
  - PULMONARY FIBROSIS [None]
